FAERS Safety Report 5627455-9 (Version None)
Quarter: 2008Q1

REPORT INFORMATION
  Report Type: 
  Country: None (occurrence: None)
  Receive Date: 20080202
  Receipt Date: 20080202
  Transmission Date: 20080703
  Serious: No
  Sender: FDA-Public Use
  Company Number: None

PATIENT
  Age: 39 Year
  Sex: Female
  Weight: 52.1637 kg

DRUGS (1)
  1. LEVAQUIN [Suspect]
     Indication: COUGH
     Dosage: 1 PILL ONCE A DAY PO
     Route: 048
     Dates: start: 20080206, end: 20080211

REACTIONS (13)
  - ANOREXIA [None]
  - ASTHENIA [None]
  - CHILLS [None]
  - CONTUSION [None]
  - DISCOMFORT [None]
  - DIZZINESS [None]
  - DYSGEUSIA [None]
  - FEELING ABNORMAL [None]
  - FEELING HOT [None]
  - HEADACHE [None]
  - LOSS OF CONSCIOUSNESS [None]
  - MOUTH INJURY [None]
  - PRURITUS GENERALISED [None]
